FAERS Safety Report 17527978 (Version 7)
Quarter: 2020Q3

REPORT INFORMATION
  Report Type: Report from Study
  Country: US (occurrence: US)
  Receive Date: 20200311
  Receipt Date: 20200923
  Transmission Date: 20201102
  Serious: Yes (Other)
  Sender: FDA-Public Use
  Company Number: NVSC2020US063669

PATIENT
  Age: 36 Year
  Sex: Male
  Weight: 70 kg

DRUGS (2)
  1. ADAKVEO [Suspect]
     Active Substance: CRIZANLIZUMAB-TMCA
     Indication: SICKLE CELL DISEASE
     Dosage: UNK (1ST DOSE)
     Route: 042
     Dates: start: 20200212
  2. ADAKVEO [Suspect]
     Active Substance: CRIZANLIZUMAB-TMCA
     Dosage: UNK (2ND DOSE)
     Route: 065
     Dates: start: 20200226

REACTIONS (5)
  - Cerebral haemorrhage [Unknown]
  - Depression [Unknown]
  - Intentional dose omission [Unknown]
  - Headache [Not Recovered/Not Resolved]
  - Injury [Unknown]

NARRATIVE: CASE EVENT DATE: 20200212
